FAERS Safety Report 4672797-7 (Version None)
Quarter: 2005Q2

REPORT INFORMATION
  Report Type: 
  Country: None (occurrence: None)
  Receive Date: 20050524
  Receipt Date: 20050516
  Transmission Date: 20051028
  Serious: Yes (Other)
  Sender: FDA-Public Use
  Company Number: FR-BRISTOL-MYERS SQUIBB COMPANY-12970406

PATIENT

DRUGS (2)
  1. BLEOMYCIN SULFATE [Suspect]
     Route: 042
     Dates: start: 20050404
  2. DETICENE [Suspect]
     Route: 042
     Dates: start: 20050404

REACTIONS (3)
  - CHILLS [None]
  - HYPERTENSION [None]
  - PYREXIA [None]
